FAERS Safety Report 25157046 (Version 2)
Quarter: 2025Q2

REPORT INFORMATION
  Report Type: Report from Study
  Country: US (occurrence: US)
  Receive Date: 20250403
  Receipt Date: 20250605
  Transmission Date: 20250716
  Serious: Yes (Death, Other)
  Sender: INCYTE
  Company Number: US-EVENT-002307

PATIENT
  Age: 74 Year

DRUGS (1)
  1. JAKAFI [Suspect]
     Active Substance: RUXOLITINIB
     Indication: Polycythaemia vera
     Dosage: 20 MILLIGRAM, BID
     Route: 065

REACTIONS (10)
  - Progressive multifocal leukoencephalopathy [Fatal]
  - Immunosuppression [Unknown]
  - Sepsis [Recovered/Resolved]
  - Loss of consciousness [Unknown]
  - Agonal respiration [Unknown]
  - Osteomyelitis [Not Recovered/Not Resolved]
  - Speech disorder [Unknown]
  - Pain [Unknown]
  - General physical health deterioration [Unknown]
  - Fall [Unknown]
